FAERS Safety Report 5277217-X (Version None)
Quarter: 2007Q1

REPORT INFORMATION
  Report Type: 
  Country: None (occurrence: None)
  Receive Date: 20061213
  Receipt Date: 20041117
  Transmission Date: 20070707
  Serious: No
  Sender: FDA-Public Use
  Company Number: 2004UW23665

PATIENT
  Age: 45 Year
  Sex: Female

DRUGS (2)
  1. SEROQUEL [Suspect]
     Dosage: 800 MG DAILY PO
     Route: 048
     Dates: start: 20040901
  2. CLOZAPINE [Concomitant]

REACTIONS (1)
  - TARDIVE DYSKINESIA [None]
